FAERS Safety Report 20752228 (Version 3)
Quarter: 2022Q2

REPORT INFORMATION
  Report Type: Report from Study
  Country: US (occurrence: US)
  Receive Date: 20220426
  Receipt Date: 20220621
  Transmission Date: 20220721
  Serious: No
  Sender: FDA-Public Use
  Company Number: US-NOVARTISTESTPH-NVSC2022US096164

PATIENT

DRUGS (1)
  1. COSENTYX [Suspect]
     Active Substance: SECUKINUMAB
     Indication: Psoriasis
     Dosage: 300 MG, QMO (EVERY FOUR WEEKS)
     Route: 058

REACTIONS (4)
  - Dry skin [Recovering/Resolving]
  - Pain [Unknown]
  - Skin wrinkling [Unknown]
  - Hypoaesthesia [Unknown]
